FAERS Safety Report 6898018-2 (Version None)
Quarter: 2010Q3

REPORT INFORMATION
  Report Type: 
  Country: None (occurrence: None)
  Receive Date: 20100802
  Receipt Date: 20070830
  Transmission Date: 20110219
  Serious: No
  Sender: FDA-Public Use
  Company Number: US-PFIZER INC-2007074686

PATIENT
  Age: 50 Year
  Sex: Female

DRUGS (7)
  1. LYRICA [Suspect]
     Indication: FIBROMYALGIA
     Dates: start: 20070306, end: 20070403
  2. VICODIN [Concomitant]
  3. TRAMADOL HYDROCHLORIDE [Concomitant]
  4. AMBIEN [Concomitant]
  5. SYNTHROID [Concomitant]
  6. XYREM [Concomitant]
  7. MULTIPLE VITAMINS [Concomitant]

REACTIONS (1)
  - DIZZINESS [None]
